FAERS Safety Report 9892802 (Version 1)
Quarter: 2014Q1

REPORT INFORMATION
  Report Type: Report from Study
  Country: US (occurrence: US)
  Receive Date: 20140212
  Receipt Date: 20140212
  Transmission Date: 20141002
  Serious: Yes (Death)
  Sender: FDA-Public Use
  Company Number: US-ROCHE-1324616

PATIENT
  Sex: Female

DRUGS (7)
  1. AVASTIN [Suspect]
     Indication: OVARIAN CANCER
     Dosage: THERAPY DATE: 29/NOV/2010,
     Route: 042
     Dates: start: 20101115
  2. AVASTIN [Suspect]
     Indication: METASTASES TO CENTRAL NERVOUS SYSTEM
  3. AVASTIN [Suspect]
     Indication: METASTASES TO CENTRAL NERVOUS SYSTEM
  4. GEMZAR [Concomitant]
     Route: 042
     Dates: start: 20101115
  5. GEMZAR [Concomitant]
     Route: 042
     Dates: start: 20101216
  6. NEULASTA [Concomitant]
     Route: 058
  7. PALONOSETRON [Concomitant]
     Dosage: 250 MCG
     Route: 042

REACTIONS (2)
  - Death [Fatal]
  - Off label use [Unknown]
